FAERS Safety Report 6098779-9 (Version None)
Quarter: 2009Q1

REPORT INFORMATION
  Report Type: 
  Country: None (occurrence: None)
  Receive Date: 20090302
  Receipt Date: 20090218
  Transmission Date: 20090719
  Serious: Yes (Life-Threatening, Other)
  Sender: FDA-Public Use
  Company Number: AU-PFIZER INC-2009165162

PATIENT

DRUGS (6)
  1. VFEND [Suspect]
     Indication: FUNGAL INFECTION
     Dosage: 400 MG, 2X/DAY
     Route: 048
     Dates: start: 20090120, end: 20090122
  2. VFEND [Suspect]
     Dosage: 300 MG, 2X/DAY
     Route: 048
  3. VALACICLOVIR [Concomitant]
     Dosage: 500 MG, 1X/DAY
     Route: 048
     Dates: start: 20090118
  4. NULYTELY [Concomitant]
     Indication: CONSTIPATION
     Dosage: UNK
  5. SODIUM CHLORIDE [Concomitant]
  6. TAZOCIN [Concomitant]
     Dosage: 4.5 G, 1X/DAY
     Route: 042
     Dates: start: 20090112

REACTIONS (4)
  - RETINAL HAEMORRHAGE [None]
  - THROMBOSIS [None]
  - VISION BLURRED [None]
  - VISUAL ACUITY REDUCED [None]
